FAERS Safety Report 7985709-5 (Version None)
Quarter: 2011Q4

REPORT INFORMATION
  Report Type: 
  Country: None (occurrence: None)
  Receive Date: 20111216
  Receipt Date: 20111216
  Transmission Date: 20120403
  Serious: Yes (Other)
  Sender: FDA-Public Use
  Company Number: None

PATIENT
  Age: 70 Year
  Sex: Male
  Weight: 76.657 kg

DRUGS (1)
  1. EDETATE CALCIUM DISODIUM [Suspect]
     Dosage: 1000 MG
     Route: 054
     Dates: start: 20091015, end: 20091204

REACTIONS (2)
  - SYNCOPE [None]
  - LOSS OF CONSCIOUSNESS [None]
